FAERS Safety Report 18527684 (Version 2)
Quarter: 2020Q4

REPORT INFORMATION
  Report Type: Spontaneous
  Country: US (occurrence: US)
  Receive Date: 20201120
  Receipt Date: 20201214
  Transmission Date: 20210114
  Serious: No
  Sender: FDA-Public Use
  Company Number: US-ASTRAZENECA-2020SF40618

PATIENT
  Sex: Female
  Weight: 72.6 kg

DRUGS (3)
  1. LEVOTHYROXIN [Concomitant]
     Active Substance: LEVOTHYROXINE
  2. BYDUREON BCISE [Suspect]
     Active Substance: EXENATIDE
     Indication: INSULIN-REQUIRING TYPE 2 DIABETES MELLITUS
     Route: 058
  3. METFORMIN [Concomitant]
     Active Substance: METFORMIN HYDROCHLORIDE

REACTIONS (6)
  - Memory impairment [Unknown]
  - Injection site extravasation [Unknown]
  - Wrong technique in device usage process [Unknown]
  - Injection site mass [Unknown]
  - Weight decreased [Unknown]
  - Device mechanical issue [Unknown]
